FAERS Safety Report 19887306 (Version 1)
Quarter: 2021Q3

REPORT INFORMATION
  Report Type: Spontaneous
  Country: NL (occurrence: NL)
  Receive Date: 20210928
  Receipt Date: 20210928
  Transmission Date: 20211014
  Serious: Yes (Other)
  Sender: FDA-Public Use
  Company Number: NL-TEVA-2021-NL-1957463

PATIENT
  Sex: Male
  Weight: 105 kg

DRUGS (3)
  1. ATORVASTATINE TABLET 40MG / BRAND NAME NOT SPECIFIED [Suspect]
     Active Substance: ATORVASTATIN
     Indication: HYPERCHOLESTEROLAEMIA
     Dosage: 40 MILLIGRAM DAILY; 1 X PER DAY 1 PIECE
     Route: 065
     Dates: start: 2014, end: 20210401
  2. INSULINE GLARGINE 100E/ML INJVLST / ABASAGLAR INJVLST 100E/ML PEN 3ML [Concomitant]
     Dosage: FLUID, 100 UNITS/ML, THERAPY START AND END DATE: ASKU, 1DF
  3. INSULINE GEWOON INJVLST 100IE/ML / ACTRAPID INJ 100IE/ML FLACON 10ML [Concomitant]
     Dosage: FLUID, 100 IU/ML (UNITS PER MILLILITER), THERAPY START AND END DATE: ASKU, 1 DF

REACTIONS (3)
  - Back pain [Unknown]
  - Muscle rupture [Unknown]
  - Musculoskeletal stiffness [Recovered/Resolved]
